FAERS Safety Report 19310820 (Version 1)
Quarter: 2021Q2

REPORT INFORMATION
  Report Type: Report from Study
  Country: GB (occurrence: KR)
  Receive Date: 20210526
  Receipt Date: 20210526
  Transmission Date: 20210717
  Serious: Yes (Death, Other)
  Sender: FDA-Public Use
  Company Number: GB-GILEAD-2007-0011458

PATIENT
  Age: 46 Year
  Sex: Male

DRUGS (7)
  1. LAMIVUDINE. [Concomitant]
     Active Substance: LAMIVUDINE
     Dates: start: 20040227
  2. SPIRONOLACTONE. [Concomitant]
     Active Substance: SPIRONOLACTONE
     Dates: start: 20031208
  3. GLIMEPIRIDE. [Concomitant]
     Active Substance: GLIMEPIRIDE
     Dates: start: 20040312
  4. HEPSERA [Suspect]
     Active Substance: ADEFOVIR DIPIVOXIL
     Indication: PRODUCT USED FOR UNKNOWN INDICATION
     Dosage: 10 MG
     Route: 048
     Dates: start: 20060723
  5. ADEFOVIR DIPIVOXIL. [Suspect]
     Active Substance: ADEFOVIR DIPIVOXIL
     Indication: HEPATITIS B
     Dosage: 10 MG, QD
     Route: 048
     Dates: start: 20060723
  6. FRUSEMIDE [Concomitant]
     Active Substance: FUROSEMIDE
     Dates: start: 20031209
  7. ORNITHINE [Concomitant]
     Active Substance: ORNITHINE
     Dates: start: 20050212

REACTIONS (2)
  - Muscle necrosis [Fatal]
  - Fasciitis [Fatal]

NARRATIVE: CASE EVENT DATE: 20060901
